FAERS Safety Report 5031179-9 (Version None)
Quarter: 2006Q2

REPORT INFORMATION
  Report Type: 
  Country: None (occurrence: None)
  Receive Date: 20060505
  Receipt Date: 20050712
  Transmission Date: 20061013
  Serious: Yes (Life-Threatening)
  Sender: FDA-Public Use
  Company Number: S05-USA-03505-01

PATIENT
  Sex: Female

DRUGS (2)
  1. CERVIDIL [Suspect]
  2. PITOCIN [Concomitant]

REACTIONS (1)
  - UTERINE RUPTURE [None]
